FAERS Safety Report 9839155 (Version 2)
Quarter: 2014Q2

REPORT INFORMATION
  Report Type: Spontaneous
  Country: GB (occurrence: GB)
  Receive Date: 20140123
  Receipt Date: 20140410
  Transmission Date: 20141212
  Serious: Yes (Hospitalization)
  Sender: FDA-Public Use
  Company Number: PHHY2014GB005492

PATIENT
  Age: 84 Year
  Sex: Male

DRUGS (11)
  1. CLARITHROMYCIN [Suspect]
     Indication: CHRONIC OBSTRUCTIVE PULMONARY DISEASE
     Dosage: 500 MG, BID
     Route: 048
     Dates: start: 20131229, end: 20140105
  2. WARFARIN [Interacting]
     Indication: ATRIAL FIBRILLATION
     Route: 048
     Dates: start: 19940101, end: 20140107
  3. SPIRIVA [Concomitant]
     Indication: CHRONIC OBSTRUCTIVE PULMONARY DISEASE
     Dosage: 18 UG, QD
     Route: 055
  4. ASPIRIN [Concomitant]
     Dosage: 75 MG, QD
     Route: 048
  5. DIGOXIN [Concomitant]
     Dosage: 125 UG, QD
     Route: 048
  6. OMEPRAZOLE [Concomitant]
     Dosage: 20 MG, QD, TAKEN AS NEEDED
     Route: 048
  7. OMEPRAZOLE [Concomitant]
     Dosage: TAKEN AS NEEDED
     Route: 048
  8. PARACETAMOL [Concomitant]
     Dosage: 1 G, QID
     Route: 048
  9. METFORMIN [Concomitant]
     Dosage: 500 MG, BID
     Route: 048
  10. SALBUTAMOL [Concomitant]
     Dosage: 1-2 PUFFS
     Route: 055
  11. PREDNISOLONE [Concomitant]
     Indication: CHRONIC OBSTRUCTIVE PULMONARY DISEASE
     Dosage: 30 MG, QD
     Route: 048
     Dates: start: 20131229, end: 20140103

REACTIONS (5)
  - Cough [Unknown]
  - Abdominal wall haematoma [Recovering/Resolving]
  - Abdominal distension [Unknown]
  - Abdominal pain [Unknown]
  - Drug interaction [Unknown]
